FAERS Safety Report 6940193-5 (Version None)
Quarter: 2010Q3

REPORT INFORMATION
  Report Type: 
  Country: None (occurrence: None)
  Receive Date: 20100820
  Receipt Date: 20100805
  Transmission Date: 20110219
  Serious: Yes (Hospitalization)
  Sender: FDA-Public Use
  Company Number: DSJ-2010-13284

PATIENT
  Age: 59 Year
  Sex: Female

DRUGS (8)
  1. BENICAR [Suspect]
     Indication: HYPERTENSION
     Dosage: 40 MG (40 MG, 1 IN 1 D), PER ORAL
     Route: 048
     Dates: start: 20090101, end: 20100401
  2. FUROSEMIDE (FUROSEMIDE) (TABLET) (FUROSEMIDE) [Suspect]
     Dosage: 40 MG (40 MG, 1 IN 1 D), PER ORAL
     Route: 048
     Dates: start: 20090101
  3. AMILORIDE (AMILORIDE) (TABLET) (AMILORIDE) [Suspect]
     Dosage: 10 MG (10 MG, 1 IN 1 D), PER ORAL
     Route: 048
     Dates: start: 20090101
  4. CARVEDILOL (CARVEDILOL) (CARVEDILOL) [Concomitant]
  5. EZETIMIBE /SIMVASTATIN (SIMVASTATIN, EZETIMIBE) (SIMVASTATIN, EZETIMIB [Concomitant]
  6. PROPATYLNITRATE (PROPATYLNITRATE) (PROPATYLNITRATE) [Concomitant]
  7. DOMPERIDONE (DOMPERIDONE) (DOMPERIDONE) [Concomitant]
  8. TRIMETHAZIDINE [Concomitant]

REACTIONS (1)
  - ANGINA PECTORIS [None]
